FAERS Safety Report 6765322-8 (Version None)
Quarter: 2010Q2

REPORT INFORMATION
  Report Type: 
  Country: None (occurrence: None)
  Receive Date: 20100611
  Receipt Date: 20100531
  Transmission Date: 20101027
  Serious: Yes (Other)
  Sender: FDA-Public Use
  Company Number: PHHY2009BR38380

PATIENT
  Age: 56 Year
  Sex: Male
  Weight: 75 kg

DRUGS (6)
  1. RASILEZ [Suspect]
     Indication: PROTEINURIA
     Dosage: 1 TABLET (300 MG) BID
     Route: 048
     Dates: start: 20090301
  2. RASILEZ [Suspect]
     Indication: HYPERTENSION
     Dosage: 1 TABLET (300 MG), DAILY.
  3. ATENSINA [Concomitant]
     Indication: HYPERTENSION
     Dosage: 1 TABLET (200 MG), BID
  4. SIMVASTATIN [Concomitant]
     Indication: BLOOD CHOLESTEROL INCREASED
     Dosage: 1 TABLET (80 MG), AT NIGHT
  5. ATENOLOL [Concomitant]
     Indication: HYPERTENSION
     Dosage: 1 TABLET (50 MG), UNK
  6. AMLODIPINE BESYLATE [Concomitant]
     Dosage: 1 TABLET (5 MG), BID

REACTIONS (5)
  - APTYALISM [None]
  - DRY MOUTH [None]
  - LIP DRY [None]
  - PROTEIN TOTAL DECREASED [None]
  - TONGUE DRY [None]
